FAERS Safety Report 16748784 (Version 3)
Quarter: 2020Q1

REPORT INFORMATION
  Report Type: Report from Study
  Country: CN (occurrence: CN)
  Receive Date: 20190828
  Receipt Date: 20200221
  Transmission Date: 20200409
  Serious: Yes (Hospitalization)
  Sender: FDA-Public Use
  Company Number: CN-ROCHE-2383820

PATIENT
  Age: 63 Year
  Sex: Male
  Weight: 64.8 kg

DRUGS (5)
  1. ERLOTINIB [Suspect]
     Active Substance: ERLOTINIB
     Route: 048
     Dates: start: 20170526
  2. BEVACIZUMAB. [Suspect]
     Active Substance: BEVACIZUMAB
     Route: 042
     Dates: start: 20170526
  3. BEVACIZUMAB. [Suspect]
     Active Substance: BEVACIZUMAB
     Route: 042
     Dates: start: 20170418
  4. BEVACIZUMAB. [Suspect]
     Active Substance: BEVACIZUMAB
     Indication: NON-SMALL CELL LUNG CANCER
     Dosage: ON 12/APR/2017, HE RECEIVED THE MOST RECENT DOSE OF BEVACIZUMAB (970 MG) PRIOR TO SERIOUS ADVERSE EV
     Route: 042
     Dates: start: 20170324
  5. ERLOTINIB [Suspect]
     Active Substance: ERLOTINIB
     Indication: NON-SMALL CELL LUNG CANCER
     Dosage: ON 04/MAY/2017, HE RECEIVED THE MOST RECENT DOSE (150 MG) OF ERLOTINIB PRIOR TO SERIOUS ADVERSE EVEN
     Route: 048
     Dates: start: 20170324

REACTIONS (2)
  - Hepatic function abnormal [Recovered/Resolved]
  - Liver injury [Recovering/Resolving]

NARRATIVE: CASE EVENT DATE: 20170504
